FAERS Safety Report 7346017-9 (Version None)
Quarter: 2011Q1

REPORT INFORMATION
  Report Type: 
  Country: None (occurrence: None)
  Receive Date: 20110311
  Receipt Date: 20110224
  Transmission Date: 20110831
  Serious: Yes (Death, Hospitalization, Other)
  Sender: FDA-Public Use
  Company Number: US-RANBAXY-2011RR-42774

PATIENT
  Sex: Female

DRUGS (5)
  1. LEVAQUIN [Suspect]
     Indication: BACTERIAL INFECTION
     Dosage: 500 MG, UNK
     Route: 048
     Dates: start: 20031104, end: 20031117
  2. PREDNISOLONE [Suspect]
     Indication: ANTIBIOTIC THERAPY
     Dosage: UNK
     Route: 048
     Dates: start: 20030601
  3. CIPROFLOXACIN [Suspect]
     Indication: ANTIBIOTIC THERAPY
     Dosage: UNK
     Route: 065
     Dates: start: 20031101
  4. LEVAQUIN [Suspect]
     Indication: COUGH
  5. PREDNISOLONE [Suspect]
     Dosage: UNK
     Route: 048
     Dates: start: 20080101, end: 20100101

REACTIONS (2)
  - TENDON RUPTURE [None]
  - ROTATOR CUFF SYNDROME [None]
